FAERS Safety Report 18410310 (Version 3)
Quarter: 2021Q1

REPORT INFORMATION
  Report Type: Report from Study
  Country: US (occurrence: US)
  Receive Date: 20201021
  Receipt Date: 20210326
  Transmission Date: 20210419
  Serious: Yes (Other)
  Sender: FDA-Public Use
  Company Number: US-HORIZON-2020HZN00162

PATIENT

DRUGS (4)
  1. VITAMIN D?400 10 MCG TABLET [Concomitant]
  2. LEVOTHYROXINE SODIUM 125MCG TABLET [Concomitant]
  3. TEPEZZA [Suspect]
     Active Substance: TEPROTUMUMAB-TRBW
     Indication: ENDOCRINE OPHTHALMOPATHY
     Dosage: UNK UNK, EVERY 3 WEEKS
     Route: 065
     Dates: start: 20201005
  4. TEPEZZA [Suspect]
     Active Substance: TEPROTUMUMAB-TRBW
     Dosage: 5TH INFUSION, EVERY 3 WEEKS
     Route: 065
     Dates: start: 20201230

REACTIONS (2)
  - Polymenorrhoea [Unknown]
  - Type 1 diabetes mellitus [Unknown]

NARRATIVE: CASE EVENT DATE: 20201006
